FAERS Safety Report 5157100-0 (Version None)
Quarter: 2006Q4

REPORT INFORMATION
  Report Type: 
  Country: None (occurrence: None)
  Receive Date: 20061127
  Receipt Date: 20061115
  Transmission Date: 20070319
  Serious: Yes (Other)
  Sender: FDA-Public Use
  Company Number: US-BAYER-200616484BWH

PATIENT
  Age: 84 Year
  Sex: Male

DRUGS (2)
  1. AVELOX [Suspect]
     Indication: DRUG USE FOR UNKNOWN INDICATION
     Route: 048
  2. PREDNISONE TAB [Concomitant]
     Route: 048

REACTIONS (1)
  - BLOOD GLUCOSE DECREASED [None]
